FAERS Safety Report 7490050-3 (Version None)
Quarter: 2011Q2

REPORT INFORMATION
  Report Type: 
  Country: None (occurrence: None)
  Receive Date: 20110517
  Receipt Date: 20110517
  Transmission Date: 20111010
  Serious: Yes (Other)
  Sender: FDA-Public Use
  Company Number: None

PATIENT
  Age: 68 Year
  Sex: Female
  Weight: 66.6788 kg

DRUGS (2)
  1. CELEBREX [Suspect]
     Indication: INTERVERTEBRAL DISC PROTRUSION
     Dosage: 200 MGMS O/D PO
     Route: 048
     Dates: start: 20110131, end: 20110202
  2. CELEBREX [Suspect]
     Indication: BACK PAIN
     Dosage: 200 MGMS O/D PO
     Route: 048
     Dates: start: 20110131, end: 20110202

REACTIONS (7)
  - VERTIGO [None]
  - DOCUMENTED HYPERSENSITIVITY TO ADMINISTERED DRUG [None]
  - MUSCLE SPASMS [None]
  - VISION BLURRED [None]
  - NAUSEA [None]
  - DRUG HYPERSENSITIVITY [None]
  - CONTUSION [None]
